FAERS Safety Report 20937629 (Version 2)
Quarter: 2022Q2

REPORT INFORMATION
  Report Type: Spontaneous
  Country: US (occurrence: None)
  Receive Date: 20220609
  Receipt Date: 20220622
  Transmission Date: 20220721
  Serious: No
  Sender: FDA-Public Use
  Company Number: 2022A199344

PATIENT
  Sex: Female

DRUGS (2)
  1. FASLODEX [Suspect]
     Active Substance: FULVESTRANT
     Route: 030
  2. IBRANCE [Suspect]
     Active Substance: PALBOCICLIB
     Indication: Breast cancer
     Dosage: 125 MG/ DAILY FOR 21 DAYS ON 7 OFF-HAS TABLETS-WITH FASLODEX
     Route: 048
     Dates: start: 20220412

REACTIONS (9)
  - White blood cell count decreased [Recovering/Resolving]
  - Migraine [Unknown]
  - Bone pain [Unknown]
  - Chest pain [Unknown]
  - Aphthous ulcer [Recovering/Resolving]
  - Blood glucose increased [Recovering/Resolving]
  - Injection site pain [Recovered/Resolved]
  - Constipation [Unknown]
  - Hot flush [Recovering/Resolving]
